FAERS Safety Report 4986572-7 (Version None)
Quarter: 2006Q2

REPORT INFORMATION
  Report Type: 
  Country: None (occurrence: None)
  Receive Date: 20060428
  Receipt Date: 20051122
  Transmission Date: 20061013
  Serious: No
  Sender: FDA-Public Use
  Company Number: US-GLAXOSMITHKLINE-A0583496A

PATIENT
  Age: 48 Year
  Sex: Female

DRUGS (9)
  1. VENTOLIN [Suspect]
     Indication: ASTHMA
     Dosage: 2PUFF FOUR TIMES PER DAY
     Route: 055
     Dates: start: 20050101, end: 20050101
  2. VENTOLIN [Suspect]
     Dosage: 2PUFF FOUR TIMES PER DAY
     Route: 055
  3. ALBUTEROL [Suspect]
     Indication: ASTHMA
     Route: 055
  4. NEBULIZER [Concomitant]
  5. MAXZIDE [Concomitant]
  6. OXYCONTIN [Concomitant]
  7. ATIVAN [Concomitant]
  8. FOSAMAX [Concomitant]
  9. ADVAIR DISKUS 100/50 [Concomitant]

REACTIONS (2)
  - APHONIA [None]
  - DRUG INEFFECTIVE [None]
